FAERS Safety Report 7312809-5 (Version None)
Quarter: 2011Q1

REPORT INFORMATION
  Report Type: 
  Country: None (occurrence: None)
  Receive Date: 20110224
  Receipt Date: 20100118
  Transmission Date: 20110831
  Serious: No
  Sender: FDA-Public Use
  Company Number: US-MYLANLABS-2008S1011112

PATIENT
  Age: 72 Year
  Sex: Female
  Weight: 68.04 kg

DRUGS (3)
  1. METOPROLOL TARTRATE [Suspect]
     Indication: BLOOD PRESSURE INCREASED
     Route: 048
  2. AMLODIPINE BESYLATE [Suspect]
     Indication: BLOOD PRESSURE INCREASED
     Route: 048
     Dates: start: 20071201
  3. DIOVAN [Suspect]
     Indication: BLOOD PRESSURE INCREASED
     Route: 048

REACTIONS (2)
  - ABNORMAL LOSS OF WEIGHT [None]
  - WEIGHT DECREASED [None]
